FAERS Safety Report 8603750-6 (Version None)
Quarter: 2012Q3

REPORT INFORMATION
  Report Type: 
  Country: None (occurrence: None)
  Receive Date: 20120817
  Receipt Date: 20120808
  Transmission Date: 20120928
  Serious: No
  Sender: FDA-Public Use
  Company Number: US-ASTRAZENECA-2012SE56147

PATIENT
  Age: 23 Year
  Sex: Male
  Weight: 49 kg

DRUGS (5)
  1. NEXIUM [Suspect]
     Indication: GASTROOESOPHAGEAL REFLUX DISEASE
     Route: 048
  2. BACLEN [Concomitant]
  3. MIRALAX [Concomitant]
  4. LORIDE [Concomitant]
  5. ALLERGY MEDICATION [Concomitant]

REACTIONS (1)
  - HYPERCHLORHYDRIA [None]
